FAERS Safety Report 7248569-6 (Version None)
Quarter: 2011Q1

REPORT INFORMATION
  Report Type: 
  Country: None (occurrence: None)
  Receive Date: 20110128
  Receipt Date: 20101208
  Transmission Date: 20110831
  Serious: Yes (Other)
  Sender: FDA-Public Use
  Company Number: US-BAYER-2011-000514

PATIENT
  Sex: Female
  Weight: 59 kg

DRUGS (4)
  1. DILTIAZEM [Concomitant]
  2. AVAPRO [Concomitant]
  3. ACETAMINOPHEN, ASPIRIN AND CAFFEINE [Suspect]
     Indication: HEADACHE
     Dosage: 1 DF, OM
     Route: 048
  4. ACETAMINOPHEN, ASPIRIN AND CAFFEINE [Suspect]
     Indication: BACK PAIN

REACTIONS (4)
  - DRUG DEPENDENCE [None]
  - HYPERVIGILANCE [None]
  - ENERGY INCREASED [None]
  - FEELING ABNORMAL [None]
